FAERS Safety Report 8992171 (Version 1)
Quarter: 2012Q4

REPORT INFORMATION
  Report Type: Report from Study
  Country: CA (occurrence: CA)
  Receive Date: 20121231
  Receipt Date: 20121231
  Transmission Date: 20130627
  Serious: Yes (Hospitalization, Other)
  Sender: FDA-Public Use
  Company Number: CA-ROCHE-1173149

PATIENT
  Sex: Female
  Weight: 42.22 kg

DRUGS (2)
  1. OMALIZUMAB [Suspect]
     Indication: ASTHMA
     Route: 058
     Dates: start: 20050712
  2. CORTISONE [Concomitant]
     Indication: PRODUCT USED FOR UNKNOWN INDICATION

REACTIONS (25)
  - Vascular operation [Unknown]
  - Lung neoplasm [Unknown]
  - Abdominal pain [Recovering/Resolving]
  - Intestinal operation [Unknown]
  - Gastrointestinal carcinoma [Not Recovered/Not Resolved]
  - Gastrointestinal disorder [Unknown]
  - Pneumonia [Recovering/Resolving]
  - Haematochezia [Not Recovered/Not Resolved]
  - Dyspnoea exertional [Unknown]
  - Weight decreased [Unknown]
  - Nervousness [Unknown]
  - Blood pressure decreased [Unknown]
  - Crying [Unknown]
  - Polyp [Unknown]
  - Swelling face [Unknown]
  - Heart rate increased [Unknown]
  - Rhinitis allergic [Unknown]
  - Upper-airway cough syndrome [Unknown]
  - Clostridium difficile infection [Unknown]
  - Pyrexia [Unknown]
  - Nasopharyngitis [Recovered/Resolved]
  - Fatigue [Unknown]
  - Productive cough [Unknown]
  - Breath sounds abnormal [Unknown]
  - Respiratory tract infection [Unknown]
